FAERS Safety Report 9375427 (Version 1)
Quarter: 2013Q2

REPORT INFORMATION
  Report Type: Spontaneous
  Country: US (occurrence: US)
  Receive Date: 20130628
  Receipt Date: 20130628
  Transmission Date: 20140414
  Serious: Yes (Other)
  Sender: FDA-Public Use
  Company Number: US-WATSON-2013-11321

PATIENT
  Sex: Male
  Weight: 112 kg

DRUGS (7)
  1. RAPAFLO (WATSON LABORATORIES) [Suspect]
     Indication: PROSTATOMEGALY
     Dosage: 8 MG, DAILY
     Route: 048
     Dates: end: 20130616
  2. LEVOTHYROXINE [Concomitant]
     Indication: THYROIDECTOMY
     Dosage: 100 MG, DAILY
     Route: 065
  3. SOTALOL [Concomitant]
     Indication: ARRHYTHMIA
     Dosage: 120 MG, BID
     Route: 065
  4. NADOLOL [Concomitant]
     Indication: HYPERTENSION
     Dosage: 40 MG, BID
     Route: 065
  5. ENALAPRIL [Concomitant]
     Indication: HYPERTENSION
     Dosage: 20 MG, BID
     Route: 065
  6. PRAVASTATIN [Concomitant]
     Indication: BLOOD CHOLESTEROL INCREASED
     Dosage: 40 MG, BID
     Route: 065
  7. ASA [Concomitant]
     Indication: PROPHYLAXIS
     Dosage: 81 MG, DAILY
     Route: 065

REACTIONS (3)
  - Cardiac flutter [Recovering/Resolving]
  - Arrhythmia [Recovering/Resolving]
  - Heart rate increased [Recovering/Resolving]
